FAERS Safety Report 9829191 (Version 1)
Quarter: 2014Q1

REPORT INFORMATION
  Report Type: Spontaneous
  Country: US (occurrence: US)
  Receive Date: 20140119
  Receipt Date: 20140119
  Transmission Date: 20141002
  Serious: No
  Sender: FDA-Public Use
  Company Number: US-009507513-1401USA002991

PATIENT
  Age: 29 Year
  Sex: Female
  Weight: 89.34 kg

DRUGS (1)
  1. NEXPLANON [Suspect]
     Indication: CONTRACEPTION
     Dosage: ^STANDARD DOSE^
     Route: 059
     Dates: start: 20131217, end: 20131226

REACTIONS (4)
  - Implant site infection [Recovered/Resolved]
  - Implant site pain [Recovered/Resolved]
  - Implant site swelling [Recovered/Resolved]
  - Implant site erythema [Recovered/Resolved]
